FAERS Safety Report 4615664-7 (Version None)
Quarter: 2005Q1

REPORT INFORMATION
  Report Type: 
  Country: None (occurrence: None)
  Receive Date: 20050317
  Receipt Date: 20050302
  Transmission Date: 20050727
  Serious: Yes (Hospitalization)
  Sender: FDA-Public Use
  Company Number: 2005BI004958

PATIENT
  Age: 42 Year
  Sex: Female
  Weight: 63.5036 kg

DRUGS (2)
  1. AVONEX [Suspect]
     Indication: MULTIPLE SCLEROSIS
     Dosage: 30 UG; QW; IM
     Route: 030
     Dates: start: 19990101, end: 20030101
  2. AVONEX [Suspect]
     Indication: MULTIPLE SCLEROSIS
     Dosage: 30 UG; QW; IM
     Route: 030
     Dates: start: 20030101

REACTIONS (5)
  - ARTHRITIS [None]
  - ASEPTIC NECROSIS BONE [None]
  - HYPERTENSION [None]
  - NASOPHARYNGITIS [None]
  - THROMBOSIS [None]
